FAERS Safety Report 15563553 (Version 1)
Quarter: 2018Q4

REPORT INFORMATION
  Report Type: Spontaneous
  Country: US (occurrence: US)
  Receive Date: 20181029
  Receipt Date: 20181029
  Transmission Date: 20190205
  Serious: Yes (Other)
  Sender: FDA-Public Use
  Company Number: US-OTSUKA-2018_034643

PATIENT
  Age: 50 Year
  Sex: Male

DRUGS (1)
  1. TOLVAPTAN [Suspect]
     Active Substance: TOLVAPTAN
     Indication: HYPONATRAEMIA
     Dosage: 30 MG, UNK
     Route: 065

REACTIONS (2)
  - Incorrect dose administered [Unknown]
  - Subarachnoid haemorrhage [Recovered/Resolved]

NARRATIVE: CASE EVENT DATE: 2018
